FAERS Safety Report 6535494-9 (Version None)
Quarter: 2010Q1

REPORT INFORMATION
  Report Type: 
  Country: None (occurrence: None)
  Receive Date: 20100113
  Receipt Date: 20100102
  Transmission Date: 20100710
  Serious: Yes (Hospitalization)
  Sender: FDA-Public Use
  Company Number: IT-CELGENEUS-083-21880-10010118

PATIENT
  Age: 34 Year
  Sex: Male

DRUGS (5)
  1. REVLIMID [Suspect]
     Route: 048
  2. METHYLPREDNISOLONE [Concomitant]
     Indication: BONE PAIN
     Route: 065
  3. METHYLPREDNISOLONE [Concomitant]
  4. METHYLPREDNISOLONE [Concomitant]
  5. ANALGESICS [Concomitant]
     Indication: BONE PAIN
     Route: 065

REACTIONS (4)
  - ANAEMIA [None]
  - FATIGUE [None]
  - THROMBOCYTOPENIA [None]
  - TUMOUR FLARE [None]
